FAERS Safety Report 26177468 (Version 1)
Quarter: 2025Q4

REPORT INFORMATION
  Report Type: Spontaneous
  Country: JP (occurrence: JP)
  Receive Date: 20251219
  Receipt Date: 20251219
  Transmission Date: 20260117
  Serious: Yes (Hospitalization)
  Sender: MERCK KGAA
  Company Number: JP-Merck Healthcare KGaA-2025064615

PATIENT
  Age: 6 Decade
  Sex: Male
  Weight: 76 kg

DRUGS (13)
  1. METGLUCO [Suspect]
     Active Substance: METFORMIN HYDROCHLORIDE
     Indication: Product used for unknown indication
     Dosage: 250 MG, QD
  2. CABERGOLINE [Suspect]
     Active Substance: CABERGOLINE
     Indication: Parkinson^s disease
     Dosage: 1.5 MG, QD
  3. CABERGOLINE [Suspect]
     Active Substance: CABERGOLINE
     Dosage: 2 MG ONCE A DAY
  4. CARBIDOPA\LEVODOPA [Suspect]
     Active Substance: CARBIDOPA\LEVODOPA
     Indication: Product used for unknown indication
     Dosage: 300 MG ONCE A DAY
  5. PITAVASTATIN CALCIUM [Concomitant]
     Active Substance: PITAVASTATIN CALCIUM
     Indication: Product used for unknown indication
     Dosage: 1 MG
  6. GOREISAN [ALISMA PLANTAGO-AQUATICA SUBSP. ORIENTALE TUBER;ATRACTYLODES [Concomitant]
     Indication: Product used for unknown indication
     Dosage: 5 G
  7. HANGEKOBOKUTO [MAGNOLIA SPP. BARK;PERILLA FRUTESCENS VAR. CRISPA HERB; [Concomitant]
     Indication: Product used for unknown indication
     Dosage: 5 G
  8. MIYA-BM [Concomitant]
     Active Substance: CLOSTRIDIUM BUTYRICUM SPORES STRAIN M-55
     Indication: Product used for unknown indication
     Dosage: 3 TABLETS
  9. RAMELTEON [Concomitant]
     Active Substance: RAMELTEON
     Indication: Product used for unknown indication
     Dosage: 8 MG
  10. REBAMIPIDE [Concomitant]
     Active Substance: REBAMIPIDE
     Indication: Product used for unknown indication
     Dosage: 300 MG
  11. RIVASTIGMINE [Concomitant]
     Active Substance: RIVASTIGMINE
     Indication: Product used for unknown indication
     Dosage: 4.5 MG
  12. MIANSERIN [Concomitant]
     Active Substance: MIANSERIN
     Indication: Product used for unknown indication
  13. HERBALS [Concomitant]
     Active Substance: HERBALS
     Indication: Product used for unknown indication
     Dosage: 5 G

REACTIONS (2)
  - Substance-induced psychotic disorder [Recovering/Resolving]
  - Off label use [Unknown]
